FAERS Safety Report 26127321 (Version 1)
Quarter: 2025Q4

REPORT INFORMATION
  Report Type: Spontaneous
  Country: US (occurrence: US)
  Receive Date: 20251205
  Receipt Date: 20251205
  Transmission Date: 20260118
  Serious: No
  Sender: PFIZER
  Company Number: US-PFIZER INC-PV202500142779

PATIENT

DRUGS (2)
  1. ZIRABEV [Suspect]
     Active Substance: BEVACIZUMAB-BVZR
     Dosage: 100 MG VIALS
  2. ZIRABEV [Suspect]
     Active Substance: BEVACIZUMAB-BVZR
     Dosage: 400 MG VIALS

REACTIONS (1)
  - Proteinuria [Unknown]
